FAERS Safety Report 7404022-8 (Version None)
Quarter: 2011Q2

REPORT INFORMATION
  Report Type: 
  Country: None (occurrence: None)
  Receive Date: 20110408
  Receipt Date: 20110314
  Transmission Date: 20111010
  Serious: Yes (Hospitalization, Other)
  Sender: FDA-Public Use
  Company Number: US-BAYER-2011-026289

PATIENT
  Age: 20 Year
  Sex: Female

DRUGS (8)
  1. YASMIN [Suspect]
     Indication: PREMENSTRUAL SYNDROME
  2. YASMIN [Suspect]
     Indication: ACNE
  3. YAZ [Suspect]
     Indication: ACNE
  4. YAZ [Suspect]
     Indication: PREMENSTRUAL SYNDROME
  5. YASMIN [Suspect]
     Indication: MENSTRUAL CYCLE MANAGEMENT
  6. YASMIN [Suspect]
     Indication: CONTRACEPTION
     Dosage: UNK
  7. YAZ [Suspect]
     Indication: CONTRACEPTION
     Dosage: UNK
  8. YAZ [Suspect]
     Indication: MENSTRUAL CYCLE MANAGEMENT

REACTIONS (5)
  - ARRHYTHMIA [None]
  - GASTROINTESTINAL DISORDER [None]
  - IRRITABLE BOWEL SYNDROME [None]
  - CHOLECYSTITIS [None]
  - GALLBLADDER DISORDER [None]
